FAERS Safety Report 10883145 (Version 1)
Quarter: 2015Q1

REPORT INFORMATION
  Report Type: Spontaneous
  Country: US (occurrence: None)
  Receive Date: 20150226
  Receipt Date: 20150226
  Transmission Date: 20150721
  Serious: Yes (Hospitalization, Disabling, Other)
  Sender: FDA-Public Use
  Company Number: None

PATIENT
  Age: 50 Year

DRUGS (3)
  1. VICODIN [Concomitant]
     Active Substance: ACETAMINOPHEN\HYDROCODONE BITARTRATE
  2. GADAVIST [Suspect]
     Active Substance: GADOBUTROL
     Indication: NUCLEAR MAGNETIC RESONANCE IMAGING BRAIN
     Dosage: ONE TIME IN BRAIN
     Route: 042
     Dates: start: 20140821
  3. PROTONIX [Concomitant]
     Active Substance: PANTOPRAZOLE SODIUM

REACTIONS (26)
  - Hypertension [None]
  - Dyspnoea [None]
  - Vision blurred [None]
  - Contrast media reaction [None]
  - Peripheral swelling [None]
  - Limb discomfort [None]
  - Tremor [None]
  - Abasia [None]
  - Muscle contracture [None]
  - Quality of life decreased [None]
  - Temperature regulation disorder [None]
  - Erythema [None]
  - Scleroderma [None]
  - Accidental overdose [None]
  - Bone pain [None]
  - Pelvic pain [None]
  - Fall [None]
  - Nervous system disorder [None]
  - Cerebrovascular accident [None]
  - Anaphylactic reaction [None]
  - Fungal oesophagitis [None]
  - Asthenia [None]
  - Tachycardia [None]
  - Arthralgia [None]
  - Paraesthesia [None]
  - Connective tissue disorder [None]

NARRATIVE: CASE EVENT DATE: 20140821
